FAERS Safety Report 7804476-9 (Version None)
Quarter: 2011Q4

REPORT INFORMATION
  Report Type: 
  Country: None (occurrence: None)
  Receive Date: 20111010
  Receipt Date: 20110928
  Transmission Date: 20120403
  Serious: Yes (Hospitalization, Other)
  Sender: FDA-Public Use
  Company Number: US-BAYER-201034250NA

PATIENT
  Age: 51 Year
  Sex: Female
  Weight: 64.853 kg

DRUGS (8)
  1. EFFEXOR XR [Concomitant]
     Indication: DEPRESSION
  2. PROTONIX [Concomitant]
  3. LORAZEPAM [Concomitant]
     Indication: ANXIETY
  4. BUSPAR [Concomitant]
     Indication: ANXIETY
  5. AMBIEN [Concomitant]
     Indication: SLEEP DISORDER
  6. YASMIN [Suspect]
     Indication: PRODUCT USED FOR UNKNOWN INDICATION
     Route: 048
  7. HYOSCYAMINE [Concomitant]
  8. TRAZODONE HYDROCHLORIDE [Concomitant]
     Indication: DEPRESSION

REACTIONS (6)
  - BILIARY DYSKINESIA [None]
  - PULMONARY EMBOLISM [None]
  - GALLBLADDER CHOLESTEROLOSIS [None]
  - CHOLECYSTECTOMY [None]
  - CHOLECYSTITIS CHRONIC [None]
  - DEEP VEIN THROMBOSIS [None]
